FAERS Safety Report 16917555 (Version 9)
Quarter: 2020Q2

REPORT INFORMATION
  Report Type: Report from Study
  Country: IE (occurrence: IE)
  Receive Date: 20191015
  Receipt Date: 20200423
  Transmission Date: 20200713
  Serious: Yes (Hospitalization, Other)
  Sender: FDA-Public Use
  Company Number: IE-SA-2019SA132509

PATIENT
  Age: 35 Year
  Sex: Female

DRUGS (9)
  1. CALCICHEW D3 [Concomitant]
     Active Substance: CALCIUM\CHOLECALCIFEROL
     Dosage: UNK UNK, QD
     Route: 050
  2. DELTACORTRIL [PREDNISOLONE] [Concomitant]
     Dosage: 35 MG, QD
     Route: 050
  3. WELLVONE [Concomitant]
     Active Substance: ATOVAQUONE
     Dosage: 750 UNK, BID
     Route: 050
  4. ALEMTUZUMAB [Suspect]
     Active Substance: ALEMTUZUMAB
     Indication: MULTIPLE SCLEROSIS
     Dosage: 12 MG, UNK
     Route: 041
  5. WELLMAN [ALLIUM SATIVUM;AMINOBENZOIC ACID;ARGININE HYDROCHLORIDE;ASCOR [Concomitant]
     Dosage: 750 MG, BID
     Route: 050
  6. ESOMEPRAZOLE. [Concomitant]
     Active Substance: ESOMEPRAZOLE MAGNESIUM
     Dosage: 40 MG, QD
     Route: 050
  7. FORTEO [Concomitant]
     Active Substance: TERIPARATIDE
     Dosage: 70 MG, QW
     Route: 050
  8. PREDNISOLONE. [Concomitant]
     Active Substance: PREDNISOLONE
     Dosage: 5 MG, UNK
     Route: 065
  9. ALENDRONIC ACID [Concomitant]
     Active Substance: ALENDRONIC ACID
     Dosage: UNK UNK, UNK
     Route: 065

REACTIONS (15)
  - Nausea [Unknown]
  - Gingival swelling [Not Recovered/Not Resolved]
  - Nasopharyngitis [Recovering/Resolving]
  - Ovulation pain [Unknown]
  - Immune thrombocytopenia [Recovering/Resolving]
  - Back pain [Not Recovered/Not Resolved]
  - Limb discomfort [Recovered/Resolved]
  - Hypoacusis [Recovering/Resolving]
  - Headache [Unknown]
  - Central nervous system lesion [Unknown]
  - Platelet count decreased [Not Recovered/Not Resolved]
  - Oral mucosal discolouration [Recovered/Resolved]
  - Oral herpes [Recovering/Resolving]
  - Cough [Recovering/Resolving]
  - Abdominal pain upper [Unknown]

NARRATIVE: CASE EVENT DATE: 20190511
